FAERS Safety Report 17045711 (Version 1)
Quarter: 2019Q4

REPORT INFORMATION
  Report Type: Spontaneous
  Country: CN (occurrence: CN)
  Receive Date: 20191118
  Receipt Date: 20191118
  Transmission Date: 20200122
  Serious: Yes (Hospitalization, Other)
  Sender: FDA-Public Use
  Company Number: CN-BAXTER-2019BAX022946

PATIENT
  Age: 59 Year
  Sex: Female
  Weight: 59.5 kg

DRUGS (16)
  1. 0.9% SODIUM CHLORIDE INJECTION [Suspect]
     Active Substance: SODIUM CHLORIDE
     Dosage: DOSE RE-INTRODUCED. ENDOXAN + SODIUM CHLORIDE
     Route: 041
  2. STERILE WATER [Suspect]
     Active Substance: WATER
     Dosage: 2ND CYCLE OF AC REGIMEN(DOSE REDUCED TO 80%), DOXORUBICIN HYDROCHLORIDE 75 MG + STERILE WATER 500 ML
     Route: 042
     Dates: start: 20191021, end: 20191021
  3. STERILE WATER [Suspect]
     Active Substance: WATER
     Dosage: DOSE RE-INTRODUCED. DOXORUBICIN HYDROCHLORIDE + STERILE WATER
     Route: 042
  4. MESNA. [Suspect]
     Active Substance: MESNA
     Indication: PROPHYLAXIS
     Dosage: MESNA 0.25 G + SODIUM CHLORIDE 100 ML
     Route: 041
     Dates: start: 20191021, end: 20191021
  5. 0.9% SODIUM CHLORIDE INJECTION [Suspect]
     Active Substance: SODIUM CHLORIDE
     Indication: MEDICATION DILUTION
     Dosage: 1ST CYCLE OF AC CHEMOTHERAPY REGIMEN, ENDOXAN + SODIUM CHLORIDE
     Route: 041
  6. 0.9% SODIUM CHLORIDE INJECTION [Suspect]
     Active Substance: SODIUM CHLORIDE
     Dosage: DOSE RE-INTRODUCED. MESNA + SODIUM CHLORIDE
     Route: 041
  7. ENDOXAN [Suspect]
     Active Substance: CYCLOPHOSPHAMIDE
     Indication: BREAST CANCER FEMALE
     Dosage: 1ST CYCLE OF AC CHEMOTHERAPY REGIMEN, ENDOXAN + SODIUM CHLORIDE
     Route: 041
  8. ENDOXAN [Suspect]
     Active Substance: CYCLOPHOSPHAMIDE
     Dosage: DOSE RE-INTRODUCED. ENDOXAN + SODIUM CHLORIDE
     Route: 041
  9. DOXORUBICIN HYDROCHLORIDE. [Suspect]
     Active Substance: DOXORUBICIN HYDROCHLORIDE
     Dosage: DOSE RE-INTRODUCED. DOXORUBICIN HYDROCHLORIDE + STERILE WATER
     Route: 042
  10. DOXORUBICIN HYDROCHLORIDE. [Suspect]
     Active Substance: DOXORUBICIN HYDROCHLORIDE
     Indication: BREAST CANCER FEMALE
     Dosage: 1ST CYCLE OF AC CHEMOTHERAPY REGIMEN, DOXORUBICIN HYDROCHLORIDE + STERILE WATER
     Route: 042
  11. DOXORUBICIN HYDROCHLORIDE. [Suspect]
     Active Substance: DOXORUBICIN HYDROCHLORIDE
     Dosage: 2ND CYCLE OF AC REGIMEN(DOSE REDUCED TO 80%), DOXORUBICIN HYDROCHLORIDE 75 MG + STERILE WATER 500 ML
     Route: 042
     Dates: start: 20191021, end: 20191021
  12. STERILE WATER [Suspect]
     Active Substance: WATER
     Indication: MEDICATION DILUTION
     Dosage: 1ST CYCLE OF AC CHEMOTHERAPY REGIMEN, DOXORUBICIN HYDROCHLORIDE + STERILE WATER
     Route: 042
  13. MESNA. [Suspect]
     Active Substance: MESNA
     Dosage: DOSE RE-INTRODUCED. MESNA + SODIUM CHLORIDE
     Route: 041
  14. ENDOXAN [Suspect]
     Active Substance: CYCLOPHOSPHAMIDE
     Dosage: 2ND CYCLE OF AC CHEMOTHERAPY REGIMEN (DOSE REDUCED TO 80%), ENDOXAN 0.75 G+ SODIUM CHLORIDE 100 ML
     Route: 041
     Dates: start: 20191021, end: 20191021
  15. 0.9% SODIUM CHLORIDE INJECTION [Suspect]
     Active Substance: SODIUM CHLORIDE
     Indication: MEDICATION DILUTION
     Dosage: 2ND CYCLE OF AC CHEMOTHERAPY REGIMEN (DOSE REDUCED TO 80%), ENDOXAN 0.75 G + SODIUM CHLORIDE 100 ML
     Route: 041
     Dates: start: 20191021, end: 20191021
  16. 0.9% SODIUM CHLORIDE INJECTION [Suspect]
     Active Substance: SODIUM CHLORIDE
     Dosage: MESNA 0.25 G + SODIUM CHLORIDE 1000 ML
     Route: 041
     Dates: start: 20191021, end: 20191021

REACTIONS (3)
  - Cystitis haemorrhagic [Unknown]
  - Haematuria [Recovering/Resolving]
  - Haematuria [Recovered/Resolved]

NARRATIVE: CASE EVENT DATE: 20191027
